FAERS Safety Report 8281049-8 (Version None)
Quarter: 2012Q2

REPORT INFORMATION
  Report Type: 
  Country: None (occurrence: None)
  Receive Date: 20120412
  Receipt Date: 20120323
  Transmission Date: 20120825
  Serious: Yes (Other)
  Sender: FDA-Public Use
  Company Number: TW-BAXTER-2012BAX000654

PATIENT
  Age: 59 Year
  Sex: Male

DRUGS (1)
  1. BAXTER DIANEAL PD-2, PERITONEAL DIALYSIS SOLUTION WITH 1.5% DEXTROSE [Suspect]
     Route: 033
     Dates: start: 20090501

REACTIONS (1)
  - INFECTIOUS PERITONITIS [None]
